FAERS Safety Report 9029613 (Version 1)
Quarter: 2013Q1

REPORT INFORMATION
  Report Type: Spontaneous
  Country: ES (occurrence: ES)
  Receive Date: 20130125
  Receipt Date: 20130125
  Transmission Date: 20140127
  Serious: Yes (Hospitalization)
  Sender: FDA-Public Use
  Company Number: ES-ELI_LILLY_AND_COMPANY-ES201301006857

PATIENT
  Sex: Male

DRUGS (2)
  1. FORSTEO [Suspect]
     Indication: OSTEOPOROSIS
     Dosage: 20 UG, QD
     Route: 058
     Dates: start: 20110419
  2. NOLOTIL [Concomitant]
     Indication: PAIN

REACTIONS (3)
  - Dizziness [Recovered/Resolved]
  - Blindness [Recovered/Resolved]
  - Pain in extremity [Not Recovered/Not Resolved]
